FAERS Safety Report 23862811 (Version 1)
Quarter: 2024Q2

REPORT INFORMATION
  Report Type: Spontaneous
  Country: PL (occurrence: PL)
  Receive Date: 20240516
  Receipt Date: 20240516
  Transmission Date: 20240716
  Serious: Yes (Other)
  Sender: FDA-Public Use
  Company Number: PL-ELI_LILLY_AND_COMPANY-PL202401010509

PATIENT
  Sex: Female

DRUGS (2)
  1. ABEMACICLIB [Suspect]
     Active Substance: ABEMACICLIB
     Indication: Breast cancer
     Dosage: 150 MG, UNKNOWN
     Route: 065
  2. ABEMACICLIB [Suspect]
     Active Substance: ABEMACICLIB
     Dosage: UNK, MONTHLY (1/M)

REACTIONS (2)
  - Hepatotoxicity [Unknown]
  - Erythema [Recovered/Resolved]
